FAERS Safety Report 4357364-7 (Version None)
Quarter: 2004Q2

REPORT INFORMATION
  Report Type: 
  Country: None (occurrence: None)
  Receive Date: 20040506
  Receipt Date: 20040419
  Transmission Date: 20050107
  Serious: Yes (Death)
  Sender: FDA-Public Use
  Company Number: 1594

PATIENT
  Age: 82 Year
  Sex: Female

DRUGS (2)
  1. AVINZA [Suspect]
     Indication: FALL
  2. AVINZA [Suspect]
     Indication: PAIN

REACTIONS (1)
  - RESPIRATORY DEPRESSION [None]
